FAERS Safety Report 5912935-9 (Version None)
Quarter: 2008Q4

REPORT INFORMATION
  Report Type: 
  Country: None (occurrence: None)
  Receive Date: 20081008
  Receipt Date: 20080929
  Transmission Date: 20090506
  Serious: Yes (Death)
  Sender: FDA-Public Use
  Company Number: BR-PFIZER INC-2008037868

PATIENT
  Sex: Male

DRUGS (5)
  1. LIPITOR [Suspect]
     Route: 048
     Dates: start: 20040101
  2. CORTICOSTEROIDS [Concomitant]
  3. INSULIN [Concomitant]
  4. HYGROTON [Concomitant]
     Route: 048
  5. CARDIOVASCULAR SYSTEM DRUGS [Concomitant]

REACTIONS (3)
  - ABDOMINAL PAIN UPPER [None]
  - DEATH [None]
  - MALAISE [None]
